FAERS Safety Report 15888228 (Version 1)
Quarter: 2019Q1

REPORT INFORMATION
  Report Type: Spontaneous
  Country: FR (occurrence: FR)
  Receive Date: 20190130
  Receipt Date: 20190130
  Transmission Date: 20190417
  Serious: Yes (Other)
  Sender: FDA-Public Use
  Company Number: FR-TEVA-2019-FR-1004353

PATIENT
  Age: 47 Year
  Sex: Male

DRUGS (2)
  1. CHLORHYDRATE DE TRAMADOL [Suspect]
     Active Substance: TRAMADOL HYDROCHLORIDE
     Dosage: 1500 MILLIGRAM DAILY;
     Route: 048
     Dates: start: 2016
  2. CODEINE [Suspect]
     Active Substance: CODEINE
     Dosage: 160 DOSAGE FORMS DAILY;
     Route: 048
     Dates: start: 1988

REACTIONS (2)
  - Overdose [Recovering/Resolving]
  - Drug diversion [Recovering/Resolving]
